FAERS Safety Report 15132195 (Version 1)
Quarter: 2018Q3

REPORT INFORMATION
  Report Type: Spontaneous
  Country: GB (occurrence: PL)
  Receive Date: 20180711
  Receipt Date: 20180711
  Transmission Date: 20181010
  Serious: Yes (Life-Threatening, Hospitalization)
  Sender: FDA-Public Use
  Company Number: PL-FRESENIUS KABI-FK201807638

PATIENT
  Age: 60 Year
  Sex: Male
  Weight: 71 kg

DRUGS (1)
  1. CLINDAMYCIN. [Suspect]
     Active Substance: CLINDAMYCIN
     Indication: SEPSIS
     Dosage: DAILY DOSE OF 2700 MG
     Route: 042
     Dates: start: 20150108, end: 20150112

REACTIONS (3)
  - Acute hepatic failure [Unknown]
  - Aspartate aminotransferase increased [Unknown]
  - Alanine aminotransferase increased [Unknown]

NARRATIVE: CASE EVENT DATE: 20150112
